FAERS Safety Report 23694745 (Version 1)
Quarter: 2024Q2

REPORT INFORMATION
  Report Type: Spontaneous
  Country: US (occurrence: US)
  Receive Date: 20240402
  Receipt Date: 20240402
  Transmission Date: 20240716
  Serious: Yes (Life-Threatening)
  Sender: FDA-Public Use
  Company Number: US-ALKEM LABORATORIES LIMITED-US-ALKEM-2023-06486

PATIENT

DRUGS (1)
  1. COLCHICINE [Suspect]
     Active Substance: COLCHICINE
     Indication: Product used for unknown indication
     Dosage: MORE THAN 0.8MG/KG
     Route: 065

REACTIONS (3)
  - Toxicity to various agents [Unknown]
  - Drug level increased [Unknown]
  - Overdose [Unknown]
